FAERS Safety Report 4701780-8 (Version None)
Quarter: 2005Q2

REPORT INFORMATION
  Report Type: 
  Country: None (occurrence: None)
  Receive Date: 20050628
  Receipt Date: 20050620
  Transmission Date: 20051028
  Serious: Yes (Hospitalization, Disabling, Other)
  Sender: FDA-Public Use
  Company Number: 2005-05-1949

PATIENT
  Age: 77 Year
  Sex: Female
  Weight: 71.6683 kg

DRUGS (2)
  1. DR. SCHOLL'S CORN REMOVERS DISC [Suspect]
     Indication: HYPERKERATOSIS
     Dosage: TOPICAL
     Route: 061
     Dates: start: 20050115, end: 20050119
  2. ANTIBIOTIC [Concomitant]

REACTIONS (3)
  - LOCALISED INFECTION [None]
  - OSTEOMYELITIS [None]
  - PAIN [None]
